FAERS Safety Report 4578999-2 (Version None)
Quarter: 2005Q1

REPORT INFORMATION
  Report Type: 
  Country: None (occurrence: None)
  Receive Date: 20050211
  Receipt Date: 20041209
  Transmission Date: 20050727
  Serious: Yes (Life-Threatening, Hospitalization, Other)
  Sender: FDA-Public Use
  Company Number: US-MERCK-0412USA01205

PATIENT
  Age: 84 Year
  Sex: Male
  Weight: 58 kg

DRUGS (5)
  1. BENICAR [Concomitant]
     Indication: HYPERTENSION
     Route: 048
  2. ASPIRIN [Concomitant]
     Route: 065
  3. PROZAC [Concomitant]
     Indication: DEPRESSION
     Route: 048
  4. TRANXENE [Concomitant]
     Indication: ANXIETY
     Route: 048
  5. VIOXX [Suspect]
     Indication: ARTHRITIS
     Route: 048
     Dates: start: 20030101, end: 20040105

REACTIONS (3)
  - COLONIC POLYP [None]
  - LOWER GASTROINTESTINAL HAEMORRHAGE [None]
  - PROCEDURAL SITE REACTION [None]
